FAERS Safety Report 5649832-2 (Version None)
Quarter: 2008Q1

REPORT INFORMATION
  Report Type: 
  Country: None (occurrence: None)
  Receive Date: 20080131
  Receipt Date: 20071011
  Transmission Date: 20080703
  Serious: No
  Sender: FDA-Public Use
  Company Number: 2007PV029323

PATIENT
  Age: 51 Year
  Sex: Female

DRUGS (7)
  1. EXENATIDE(EXENATIDE) PEN,DISPOSABLE [Suspect]
     Indication: TYPE 2 DIABETES MELLITUS
     Dosage: 5 UG, 2/D, SUBCUTANEOUS ; 10 UG, 2/D, SUBCUTANEOUS
     Route: 058
     Dates: start: 20060901
  2. EXENATIDE(EXENATIDE) PEN,DISPOSABLE [Suspect]
     Dosage: 10 UG, 2/D, SUBCUTANEOUS
     Route: 058
  3. AMARYL [Concomitant]
  4. GLUCOPHAGE XR (METFORMIN HYDROCHLORIDE) [Concomitant]
  5. AVANDIA [Concomitant]
  6. ACTOS /USA/ (PIOGLITAZONE HYDROCHLORIDE) [Concomitant]
  7. GLUCOTROL [Concomitant]

REACTIONS (8)
  - ABDOMINAL DISTENSION [None]
  - BLOOD GLUCOSE DECREASED [None]
  - BLOOD GLUCOSE INCREASED [None]
  - DECREASED APPETITE [None]
  - EYE HAEMORRHAGE [None]
  - INJECTION SITE BRUISING [None]
  - THIRST [None]
  - TOOTH FRACTURE [None]
